FAERS Safety Report 7525288-X (Version None)
Quarter: 2011Q2

REPORT INFORMATION
  Report Type: 
  Country: None (occurrence: None)
  Receive Date: 20110606
  Receipt Date: 20110527
  Transmission Date: 20111010
  Serious: Yes (Hospitalization, Other)
  Sender: FDA-Public Use
  Company Number: JP-PFIZER INC-2011118946

PATIENT
  Age: 85 Year
  Sex: Male

DRUGS (7)
  1. PERINDOPRIL ERBUMINE [Concomitant]
     Dosage: UNK
  2. MIGLITOL [Suspect]
     Indication: DIABETES MELLITUS
     Dosage: UNK
     Route: 048
     Dates: end: 20110424
  3. AMARYL [Concomitant]
     Dosage: UNK
  4. METFORMIN HCL [Concomitant]
     Dosage: UNK
  5. KALIMATE [Suspect]
     Dosage: UNK
  6. CONIEL [Concomitant]
     Dosage: UNK
  7. ACTOS [Concomitant]
     Dosage: UNK

REACTIONS (1)
  - PNEUMATOSIS INTESTINALIS [None]
